FAERS Safety Report 14310226 (Version 1)
Quarter: 2017Q4

REPORT INFORMATION
  Report Type: Spontaneous
  Country: FR (occurrence: FR)
  Receive Date: 20171220
  Receipt Date: 20171220
  Transmission Date: 20180321
  Serious: Yes (Disabling)
  Sender: FDA-Public Use
  Company Number: PHHY2017FR158585

PATIENT
  Sex: Female
  Weight: 64 kg

DRUGS (1)
  1. ZOMETA [Suspect]
     Active Substance: ZOLEDRONIC ACID
     Indication: CEREBELLAR TUMOUR
     Dosage: 4 MG, UNK
     Route: 065

REACTIONS (3)
  - Gingival disorder [Not Recovered/Not Resolved]
  - Oral disorder [Recovering/Resolving]
  - Gingival recession [Recovering/Resolving]
